FAERS Safety Report 9768132 (Version 1)
Quarter: 2013Q4

REPORT INFORMATION
  Report Type: Spontaneous
  Country: BR (occurrence: BR)
  Receive Date: 20131217
  Receipt Date: 20131217
  Transmission Date: 20140711
  Serious: Yes (Life-Threatening, Hospitalization, Disabling, Other)
  Sender: FDA-Public Use
  Company Number: BR-ABBVIE-13P-020-1179688-00

PATIENT
  Age: 21 Year
  Sex: Female

DRUGS (4)
  1. HUMIRA [Suspect]
     Indication: ANKYLOSING SPONDYLITIS
     Dosage: EVERY 15 DAYS
  2. HUMIRA [Suspect]
  3. PULSETHERAPY [Suspect]
     Indication: PRODUCT USED FOR UNKNOWN INDICATION
  4. UNSPECIFIED CORTICOID [Concomitant]
     Indication: PRODUCT USED FOR UNKNOWN INDICATION
     Dosage: EVERY 3 DAYS

REACTIONS (13)
  - Suicide attempt [Unknown]
  - Cardio-respiratory arrest [Unknown]
  - Syncope [Unknown]
  - Hypersensitivity [Unknown]
  - Mobility decreased [Unknown]
  - Unevaluable event [Unknown]
  - Scoliosis [Unknown]
  - Fibromyalgia [Unknown]
  - Pain [Unknown]
  - Drug ineffective [Unknown]
  - Gastritis bacterial [Unknown]
  - Malaise [Unknown]
  - Musculoskeletal stiffness [Unknown]
